FAERS Safety Report 4852995-X (Version None)
Quarter: 2005Q4

REPORT INFORMATION
  Report Type: 
  Country: None (occurrence: None)
  Receive Date: 20051214
  Receipt Date: 20051129
  Transmission Date: 20060501
  Serious: Yes (Death, Hospitalization)
  Sender: FDA-Public Use
  Company Number: US-AMGEN-US159363

PATIENT
  Sex: Female

DRUGS (4)
  1. NEULASTA [Suspect]
     Indication: CHEMOTHERAPY
     Route: 058
     Dates: start: 20040911
  2. ARANESP [Concomitant]
     Indication: ANAEMIA OF MALIGNANT DISEASE
     Route: 058
     Dates: start: 20041111
  3. CISPLATIN [Concomitant]
     Dates: start: 20040910
  4. TAXOTERE [Concomitant]
     Dates: start: 20040910

REACTIONS (8)
  - CEREBRAL HAEMORRHAGE [None]
  - CEREBROVASCULAR ACCIDENT [None]
  - CONFUSIONAL STATE [None]
  - DECREASED APPETITE [None]
  - HEADACHE [None]
  - METASTASES TO CENTRAL NERVOUS SYSTEM [None]
  - NAUSEA [None]
  - ORAL INTAKE REDUCED [None]
